FAERS Safety Report 24696667 (Version 2)
Quarter: 2024Q4

REPORT INFORMATION
  Report Type: Report from Study
  Country: CA (occurrence: CA)
  Receive Date: 20241204
  Receipt Date: 20241216
  Transmission Date: 20250115
  Serious: Yes (Hospitalization)
  Sender: NOVARTIS
  Company Number: CA-002147023-NVSC2024CA230506

PATIENT
  Age: 71 Year
  Sex: Male

DRUGS (1)
  1. COSENTYX [Suspect]
     Active Substance: SECUKINUMAB
     Indication: Psoriasis
     Dosage: 450 MG, QMO
     Route: 058
     Dates: start: 20200915

REACTIONS (4)
  - Cellulitis [Unknown]
  - Off label use [Unknown]
  - Wound [Unknown]
  - Psoriasis [Unknown]

NARRATIVE: CASE EVENT DATE: 20241109
